FAERS Safety Report 6817997-2 (Version None)
Quarter: 2010Q3

REPORT INFORMATION
  Report Type: 
  Country: None (occurrence: None)
  Receive Date: 20100706
  Receipt Date: 20100628
  Transmission Date: 20110219
  Serious: Yes (Death)
  Sender: FDA-Public Use
  Company Number: GXKR2010TW07165

PATIENT
  Age: 15 Month
  Sex: Male

DRUGS (2)
  1. RIFAMPICIN [Suspect]
     Indication: ENDOCARDITIS STAPHYLOCOCCAL
     Dosage: 10 MG/KG/DAY
     Route: 065
  2. VANCOMYCIN (NGX) [Interacting]
     Indication: ENDOCARDITIS STAPHYLOCOCCAL
     Dosage: 40 MG/KG/DAY
     Route: 042

REACTIONS (4)
  - CARDIAC FAILURE [None]
  - CARDIAC VALVE VEGETATION [None]
  - DRUG RESISTANCE [None]
  - ENDOCARDITIS STAPHYLOCOCCAL [None]
